FAERS Safety Report 7953649-3 (Version None)
Quarter: 2011Q4

REPORT INFORMATION
  Report Type: 
  Country: None (occurrence: None)
  Receive Date: 20111202
  Receipt Date: 20111126
  Transmission Date: 20120403
  Serious: Yes (Hospitalization)
  Sender: FDA-Public Use
  Company Number: IT-PFIZER INC-2011289208

PATIENT
  Age: 89 Year
  Sex: Female

DRUGS (4)
  1. ATORVASTATIN CALCIUM [Suspect]
     Indication: THROMBOSIS PROPHYLAXIS
     Dosage: 20 MG, 1X/DAY
     Route: 048
     Dates: start: 20111109, end: 20111119
  2. PANTOPAN [Concomitant]
     Dosage: 20 MG
     Route: 048
  3. ASPIRIN [Suspect]
     Indication: THROMBOSIS PROPHYLAXIS
     Dosage: 100 MG, 1X/DAY
     Route: 048
     Dates: start: 20111109, end: 20111119
  4. CARVEDILOL [Concomitant]
     Dosage: 12.5 MG
     Route: 048

REACTIONS (1)
  - DERMATITIS ALLERGIC [None]
